FAERS Safety Report 8741647 (Version 2)
Quarter: 2012Q4

REPORT INFORMATION
  Report Type: 
  Country: AR (occurrence: AR)
  Receive Date: 20120824
  Receipt Date: 20120924
  Transmission Date: 20130627
  Serious: Yes (Hospitalization)
  Sender: FDA-Public Use
  Company Number: AR-AMGEN-ARGSP2012052899

PATIENT
  Age: 65 Year
  Sex: Male

DRUGS (1)
  1. ENBREL [Suspect]
     Indication: RHEUMATOID ARTHRITIS
     Dosage: 50 mg, weekly
     Route: 058
     Dates: start: 20100930, end: 201112

REACTIONS (5)
  - Vomiting [Recovered/Resolved]
  - Colitis [Recovered/Resolved]
  - Cardiac arrest [Recovered/Resolved]
  - Cerebrovascular accident [Recovered/Resolved]
  - Hypoglycaemia [Recovered/Resolved]
